FAERS Safety Report 12934530 (Version 1)
Quarter: 2016Q4

REPORT INFORMATION
  Report Type: Report from Study
  Country: FR (occurrence: FR)
  Receive Date: 20161111
  Receipt Date: 20161111
  Transmission Date: 20170207
  Serious: Yes (Other)
  Sender: FDA-Public Use
  Company Number: FR-TOLMAR, INC.-2016FR007460

PATIENT
  Age: 71 Year
  Sex: Male

DRUGS (2)
  1. ELIGARD [Suspect]
     Active Substance: LEUPROLIDE ACETATE
     Indication: PROSTATE CANCER METASTATIC
     Dosage: EVERY 6 MONTHS
     Route: 065
     Dates: start: 201602
  2. CASODEX [Suspect]
     Active Substance: BICALUTAMIDE
     Indication: PROSTATE CANCER METASTATIC
     Dosage: UNK
     Route: 065
     Dates: start: 201602

REACTIONS (1)
  - Hormone-refractory prostate cancer [Unknown]

NARRATIVE: CASE EVENT DATE: 201606
